FAERS Safety Report 4347651-0 (Version None)
Quarter: 2004Q2

REPORT INFORMATION
  Report Type: 
  Country: None (occurrence: None)
  Receive Date: 20040422
  Receipt Date: 20040401
  Transmission Date: 20050107
  Serious: Yes (Hospitalization)
  Sender: FDA-Public Use
  Company Number: US_030292996

PATIENT
  Age: 64 Year
  Sex: Male
  Weight: 83 kg

DRUGS (14)
  1. PEMETREXED (LY231514) [Suspect]
     Indication: PLEURAL MESOTHELIOMA MALIGNANT
     Dosage: 1000 MG/OTHER
     Dates: start: 20030217
  2. CISPLATIN [Suspect]
     Indication: MESOTHELIOMA
     Dosage: 150 MG
     Dates: start: 20030217
  3. FENTANYL [Concomitant]
  4. MORPHINE SULFATE [Concomitant]
  5. ATIVAN [Concomitant]
  6. REGLAN [Concomitant]
  7. DEXAMETHASONE [Concomitant]
  8. FOLIC ACID [Concomitant]
  9. MAGNESIUM OXIDE [Concomitant]
  10. PREVACID [Concomitant]
  11. VIOXX [Concomitant]
  12. QUININE [Concomitant]
  13. ZESTRIL [Concomitant]
  14. VITAMIN B-12 [Concomitant]

REACTIONS (12)
  - AGGRESSION [None]
  - AGITATION [None]
  - ANAEMIA [None]
  - BLOOD SODIUM DECREASED [None]
  - CONFUSIONAL STATE [None]
  - DYSARTHRIA [None]
  - HEADACHE [None]
  - MENTAL STATUS CHANGES [None]
  - METABOLIC ENCEPHALOPATHY [None]
  - NEUTROPENIA [None]
  - THROMBOCYTOPENIA [None]
  - WHITE BLOOD CELL COUNT DECREASED [None]
